FAERS Safety Report 22129414 (Version 5)
Quarter: 2023Q2

REPORT INFORMATION
  Report Type: Spontaneous
  Country: CZ (occurrence: CZ)
  Receive Date: 20230323
  Receipt Date: 20230511
  Transmission Date: 20230722
  Serious: Yes (Hospitalization)
  Sender: FDA-Public Use
  Company Number: CZ-Accord-302936

PATIENT
  Age: 77 Year
  Sex: Male
  Weight: 80 kg

DRUGS (38)
  1. OXALIPLATIN [Suspect]
     Active Substance: OXALIPLATIN
     Indication: Product used for unknown indication
     Dosage: 100 MILLIGRAM/SQ. METER (1Q2W, REGIMEN 1)
     Route: 065
     Dates: start: 20230110, end: 20230110
  2. OXALIPLATIN [Suspect]
     Active Substance: OXALIPLATIN
     Dosage: 100 MILLIGRAM/SQ. METER, 1Q2W;RPD1
     Route: 065
     Dates: start: 20230124, end: 20230124
  3. OXALIPLATIN [Suspect]
     Active Substance: OXALIPLATIN
     Dosage: 100 MILLIGRAM/SQ. METER, Q2W, RPD15
     Route: 065
     Dates: start: 20230207
  4. GEMCITABINE [Suspect]
     Active Substance: GEMCITABINE
     Indication: Product used for unknown indication
     Dosage: 1000 MILLIGRAM/SQ. METER, 1Q2W
     Route: 065
     Dates: start: 20230110, end: 20230110
  5. GEMCITABINE [Suspect]
     Active Substance: GEMCITABINE
     Dosage: 1Q2W; RPD1: 1000 MILLIGRAM/SQ. METER, REGIMEN 1
     Route: 065
     Dates: start: 20230124, end: 20230124
  6. GEMCITABINE [Suspect]
     Active Substance: GEMCITABINE
     Dosage: 1000 MILLIGRAM/SQ. METER, 1Q2W
     Route: 065
     Dates: start: 20230207
  7. EPCORITAMAB [Suspect]
     Active Substance: EPCORITAMAB
     Indication: Product used for unknown indication
     Dosage: 0.16 MG PRIMING DOSE:0.16 MG, SINGLE
     Route: 058
     Dates: start: 20230110, end: 20230110
  8. EPCORITAMAB [Suspect]
     Active Substance: EPCORITAMAB
     Dosage: REPRIMING:PRIMING DOSE (RPD1):0.16MILLIGRAM, SINGLE
     Route: 058
     Dates: start: 20230124, end: 20230124
  9. EPCORITAMAB [Suspect]
     Active Substance: EPCORITAMAB
     Dosage: REPRIMING: INTERMEDIATE RPD8 0.8MILLIGRAM,SINGLE
     Route: 058
     Dates: start: 20230131, end: 20230131
  10. EPCORITAMAB [Suspect]
     Active Substance: EPCORITAMAB
     Dosage: 48 MG, REPRIMING: FULL DOSE(RPD15):, WEEKLY
     Route: 058
     Dates: start: 20230207, end: 20230207
  11. EPCORITAMAB [Suspect]
     Active Substance: EPCORITAMAB
     Dosage: 48 MG, QW REPRIMING FULL DOSE (RPD22): WEEKLY
     Route: 058
     Dates: start: 20230228
  12. BISULEPIN [Concomitant]
     Active Substance: BISULEPIN
     Dosage: 1 MILLIGRAM (1 MG)
     Route: 065
     Dates: start: 20230110, end: 20230110
  13. BISULEPIN [Concomitant]
     Active Substance: BISULEPIN
     Dosage: 1 MILLIGRAM (1 MG)
     Route: 065
     Dates: start: 20230124, end: 20230124
  14. BISULEPIN [Concomitant]
     Active Substance: BISULEPIN
     Dosage: 1 MILLIGRAM (1 MG)
     Route: 065
     Dates: start: 20230131, end: 20230131
  15. BISULEPIN [Concomitant]
     Active Substance: BISULEPIN
     Dosage: 1 MILLIGRAM (1 MG)
     Route: 065
     Dates: start: 20230207, end: 20230207
  16. BISULEPIN [Concomitant]
     Active Substance: BISULEPIN
     Dosage: 1 MILLIGRAM (1 MG)
     Route: 065
     Dates: start: 20230228, end: 20230228
  17. SULFAMETHOXAZOLE\TRIMETHOPRIM [Concomitant]
     Active Substance: SULFAMETHOXAZOLE\TRIMETHOPRIM
     Dosage: UNK
     Route: 065
     Dates: start: 20180924
  18. SULFAMETHOXAZOLE\TRIMETHOPRIM [Concomitant]
     Active Substance: SULFAMETHOXAZOLE\TRIMETHOPRIM
     Dosage: UNK
     Route: 065
     Dates: start: 201810
  19. Paralen [Concomitant]
     Dosage: 1000 MILLIGRAM (1000 MG)
     Route: 048
     Dates: start: 20230131, end: 20230131
  20. Paralen [Concomitant]
     Dosage: 1000 MILLIGRAM (1000 MG)
     Route: 048
     Dates: start: 20230207, end: 20230207
  21. Paralen [Concomitant]
     Dosage: 1000 MILLIGRAM (1000 MG)
     Route: 048
     Dates: start: 20230228, end: 20230228
  22. ZOVIRAX [Concomitant]
     Active Substance: ACYCLOVIR
     Dosage: UNK
     Route: 065
     Dates: start: 201810
  23. ZOVIRAX [Concomitant]
     Active Substance: ACYCLOVIR
     Dosage: UNK
     Route: 065
     Dates: start: 20180925
  24. ALLOPURINOL [Concomitant]
     Active Substance: ALLOPURINOL
     Dosage: UNK
     Route: 065
     Dates: start: 201708
  25. ALLOPURINOL [Concomitant]
     Active Substance: ALLOPURINOL
     Dosage: UNK
     Route: 065
     Dates: start: 20221107
  26. GRANISETRON [Concomitant]
     Active Substance: GRANISETRON
     Dosage: UNK
     Route: 065
     Dates: start: 20230110
  27. PANTOPRAZOLE [Concomitant]
     Active Substance: PANTOPRAZOLE
     Dosage: UNK
     Route: 065
     Dates: start: 202207
  28. PANTOPRAZOLE [Concomitant]
     Active Substance: PANTOPRAZOLE
     Dosage: UNK
     Route: 065
     Dates: start: 20221107
  29. PREDNISONE [Concomitant]
     Active Substance: PREDNISONE
     Dosage: 100 MILLIGRAM
     Route: 048
     Dates: start: 20230110, end: 20230113
  30. PREDNISONE [Concomitant]
     Active Substance: PREDNISONE
     Dosage: 100 MILLIGRAM
     Route: 048
     Dates: start: 20230124, end: 20230127
  31. PREDNISONE [Concomitant]
     Active Substance: PREDNISONE
     Dosage: 100 MILLIGRAM
     Route: 048
     Dates: start: 20230131, end: 20230203
  32. PREDNISONE [Concomitant]
     Active Substance: PREDNISONE
     Dosage: 100 MILLIGRAM
     Route: 048
     Dates: start: 20230207, end: 20230210
  33. PREDNISONE [Concomitant]
     Active Substance: PREDNISONE
     Dosage: 100 MILLIGRAM
     Route: 048
     Dates: start: 20230228, end: 20230303
  34. ACETAMINOPHEN [Concomitant]
     Active Substance: ACETAMINOPHEN
     Dosage: 1000 MILLIGRAM
     Route: 048
     Dates: start: 20230110, end: 20230110
  35. ACETAMINOPHEN [Concomitant]
     Active Substance: ACETAMINOPHEN
     Dosage: 1000 MILLIGRAM
     Route: 048
     Dates: start: 20230124, end: 20230124
  36. FILGRASTIM [Concomitant]
     Active Substance: FILGRASTIM
     Dosage: UNK
     Route: 065
     Dates: start: 20230112, end: 20230128
  37. FILGRASTIM [Concomitant]
     Active Substance: FILGRASTIM
     Dosage: UNK
     Route: 065
     Dates: start: 20180925
  38. ACYCLOVIR [Concomitant]
     Active Substance: ACYCLOVIR
     Dosage: UNK
     Route: 065
     Dates: start: 20230109

REACTIONS (2)
  - Asthenia [Recovered/Resolved]
  - Vertigo [Recovered/Resolved]

NARRATIVE: CASE EVENT DATE: 20230211
